FAERS Safety Report 6978833-7 (Version None)
Quarter: 2010Q3

REPORT INFORMATION
  Report Type: 
  Country: None (occurrence: None)
  Receive Date: 20100913
  Receipt Date: 20100902
  Transmission Date: 20110219
  Serious: Yes (Death, Hospitalization, Other)
  Sender: FDA-Public Use
  Company Number: BR-PFIZER INC-2010097139

PATIENT
  Age: 74 Year
  Sex: Male

DRUGS (5)
  1. VIAGRA [Suspect]
     Indication: ERECTILE DYSFUNCTION
     Dosage: 50 MG, 1X/DAY, 1 TABLET
     Route: 048
     Dates: start: 20070101
  2. CAPTOPRIL [Concomitant]
     Indication: HYPERTENSION
     Dosage: 25 MG, 2X/DAY
     Dates: start: 20000101
  3. AMLODIPINE [Concomitant]
     Dosage: 50 MG, 1X/DAY
     Dates: start: 19900101
  4. DECADRON [Concomitant]
     Indication: COAGULOPATHY
     Dosage: UNK
     Dates: start: 20090816
  5. INSULIN [Concomitant]
     Indication: DIABETES MELLITUS
     Dosage: 10 IU PER DAY
     Dates: start: 20090819

REACTIONS (6)
  - BRAIN NEOPLASM [None]
  - CEREBROVASCULAR ACCIDENT [None]
  - COMA [None]
  - DIABETES MELLITUS [None]
  - HEADACHE [None]
  - TACHYCARDIA [None]
